FAERS Safety Report 9640611 (Version 1)
Quarter: 2013Q4

REPORT INFORMATION
  Report Type: Report from Study
  Country: US (occurrence: US)
  Receive Date: 20131023
  Receipt Date: 20131023
  Transmission Date: 20140711
  Serious: No
  Sender: FDA-Public Use
  Company Number: US-ABBVIE-13P-163-1104459-00

PATIENT
  Age: 33 Year
  Sex: Female

DRUGS (3)
  1. LUPRON DEPOT [Suspect]
     Indication: ENDOMETRIOSIS
     Dosage: MONTHLY
     Dates: start: 20130215
  2. IBUPROFEN [Concomitant]
     Indication: PAIN
  3. NORETHINDRONE ACETATE [Concomitant]
     Indication: PRODUCT USED FOR UNKNOWN INDICATION
     Dates: start: 20130215

REACTIONS (3)
  - Metrorrhagia [Recovered/Resolved]
  - Menstrual disorder [Not Recovered/Not Resolved]
  - Menstrual disorder [Recovered/Resolved]
